FAERS Safety Report 5095870-0 (Version None)
Quarter: 2006Q3

REPORT INFORMATION
  Report Type: 
  Country: None (occurrence: None)
  Receive Date: 20060727
  Receipt Date: 20060410
  Transmission Date: 20061208
  Serious: No
  Sender: FDA-Public Use
  Company Number: FACT0600208

PATIENT
  Age: 33 Year
  Sex: Female
  Weight: 69.8 kg

DRUGS (3)
  1. FACTIVE [Suspect]
     Indication: RESPIRATORY TRACT INFECTION BACTERIAL
     Dosage: 320 MG,QD, ORAL
     Route: 048
     Dates: start: 20060404, end: 20060404
  2. PREDNISONE TAB [Suspect]
     Dosage: 4 MG, ORAL
     Route: 048
     Dates: start: 20060404
  3. OMNICEF [Suspect]
     Indication: BRONCHITIS CHRONIC
     Dosage: ORAL
     Route: 048
     Dates: start: 20060101, end: 20060101

REACTIONS (4)
  - BURNING SENSATION [None]
  - PRURITUS [None]
  - SWELLING FACE [None]
  - TENDON DISORDER [None]
